FAERS Safety Report 4618860-8 (Version None)
Quarter: 2005Q1

REPORT INFORMATION
  Report Type: 
  Country: None (occurrence: None)
  Receive Date: 20050323
  Receipt Date: 20050311
  Transmission Date: 20050727
  Serious: Yes (Hospitalization)
  Sender: FDA-Public Use
  Company Number: 2005043582

PATIENT
  Age: 73 Year
  Sex: Female

DRUGS (1)
  1. CELECOXIB (CELECOXIB) [Suspect]
     Indication: OSTEOARTHRITIS

REACTIONS (6)
  - FALL [None]
  - GASTRIC ULCER [None]
  - HIP ARTHROPLASTY [None]
  - HYPERTONIC BLADDER [None]
  - JOINT INJURY [None]
  - KNEE ARTHROPLASTY [None]
